FAERS Safety Report 11222523 (Version 1)
Quarter: 2015Q2

REPORT INFORMATION
  Report Type: Spontaneous
  Country: US (occurrence: US)
  Receive Date: 20150626
  Receipt Date: 20150626
  Transmission Date: 20150821
  Serious: Yes (Other)
  Sender: FDA-Public Use
  Company Number: US-ASTRAZENECA-2013SE61963

PATIENT
  Age: 20724 Day
  Sex: Female
  Weight: 58.1 kg

DRUGS (6)
  1. FENTANYL. [Concomitant]
     Active Substance: FENTANYL
     Dosage: 25 MG EVERY 32 HOURS
  2. OXYCODONE [Concomitant]
     Active Substance: OXYCODONE
  3. LORTAB [Concomitant]
     Active Substance: ACETAMINOPHEN\HYDROCODONE BITARTRATE
     Dosage: 7.5/500 ONE TO TWO TABLETS EVERY 6 HOURS AS NEEDED FOR PAIN.
  4. ROBAXIN [Concomitant]
     Active Substance: METHOCARBAMOL
  5. BYETTA [Suspect]
     Active Substance: EXENATIDE
     Indication: DIABETES MELLITUS
     Route: 065
  6. ZOFRAN [Concomitant]
     Active Substance: ONDANSETRON HYDROCHLORIDE
     Indication: NAUSEA

REACTIONS (3)
  - Metastases to lung [Unknown]
  - Pancreatic carcinoma [Unknown]
  - Pancreatic mass [Unknown]

NARRATIVE: CASE EVENT DATE: 20130119
